FAERS Safety Report 18676723 (Version 3)
Quarter: 2022Q1

REPORT INFORMATION
  Report Type: Spontaneous
  Country: US (occurrence: US)
  Receive Date: 20201229
  Receipt Date: 20220216
  Transmission Date: 20220424
  Serious: Yes (Hospitalization)
  Sender: FDA-Public Use
  Company Number: US-PFIZER INC-2020473106

PATIENT
  Age: 75 Year
  Sex: Male
  Weight: 95.25 kg

DRUGS (1)
  1. VYNDAMAX [Suspect]
     Active Substance: TAFAMIDIS
     Indication: Amyloidosis
     Dosage: 61 MG, 1X/DAY
     Route: 048
     Dates: start: 201903

REACTIONS (6)
  - Syncope [Unknown]
  - Loss of consciousness [Unknown]
  - Fall [Unknown]
  - Ankle fracture [Unknown]
  - Fibula fracture [Unknown]
  - Off label use [Unknown]

NARRATIVE: CASE EVENT DATE: 20190301
